FAERS Safety Report 6656578-0 (Version None)
Quarter: 2010Q1

REPORT INFORMATION
  Report Type: 
  Country: None (occurrence: None)
  Receive Date: 20100329
  Receipt Date: 20100323
  Transmission Date: 20100710
  Serious: Yes (Other)
  Sender: FDA-Public Use
  Company Number: US-B.I. PHARMACEUTICALS,INC./RIDGEFIELD-2010-BP-03378BP

PATIENT
  Age: 26 Year
  Sex: Female

DRUGS (1)
  1. DULCOLAX [Suspect]
     Indication: WEIGHT DECREASED
     Route: 048

REACTIONS (6)
  - ABDOMINAL PAIN UPPER [None]
  - DEPRESSION [None]
  - DRUG ABUSE [None]
  - LETHARGY [None]
  - NAUSEA [None]
  - OVERDOSE [None]
